FAERS Safety Report 9528966 (Version 1)
Quarter: 2013Q3

REPORT INFORMATION
  Report Type: Spontaneous
  Country: US (occurrence: US)
  Receive Date: 20130917
  Receipt Date: 20130917
  Transmission Date: 20140515
  Serious: No
  Sender: FDA-Public Use
  Company Number: US-BANPHARM-20131318

PATIENT
  Age: 54 Year
  Sex: Female
  Weight: 83.91 kg

DRUGS (8)
  1. ZYRTEC LIQUID GELS 10 MG [Suspect]
     Indication: HYPERSENSITIVITY
     Dosage: 1 DF, QD,
     Route: 048
  2. LOVASTATIN [Concomitant]
     Indication: BLOOD CHOLESTEROL
     Dosage: 20 MG, QD,
  3. ORTHOCYCLEN [Concomitant]
     Indication: ENDOMETRIOSIS
     Dosage: 1 DF, QD,
  4. AVAPRO [Concomitant]
     Indication: HYPERTENSION
     Dosage: 150 MG, QD,
  5. CALTRATE [Concomitant]
     Dosage: 600 MG, TID,
  6. CENTRUM WOMEN [Concomitant]
     Dosage: 1 DF, QD,
  7. FISH OIL [Concomitant]
     Dosage: 1000 MG, 1 DF, QD,
  8. BIOTIN [Concomitant]
     Dosage: 1000 MCG, QD,

REACTIONS (1)
  - Somnolence [Unknown]
